FAERS Safety Report 19018406 (Version 1)
Quarter: 2021Q1

REPORT INFORMATION
  Report Type: Spontaneous
  Country: US (occurrence: US)
  Receive Date: 20210316
  Receipt Date: 20210316
  Transmission Date: 20210420
  Serious: Yes (Hospitalization)
  Sender: FDA-Public Use
  Company Number: None

PATIENT
  Age: 54 Year
  Sex: Male
  Weight: 139.5 kg

DRUGS (1)
  1. TALTZ [Suspect]
     Active Substance: IXEKIZUMAB
     Indication: PSORIASIS
     Dosage: ?          OTHER FREQUENCY:Q 2 WEEK;?
     Route: 058
     Dates: start: 20210209, end: 20210308

REACTIONS (3)
  - Seasonal allergy [None]
  - Anaphylactic reaction [None]
  - Drug hypersensitivity [None]

NARRATIVE: CASE EVENT DATE: 20210308
